FAERS Safety Report 19378362 (Version 3)
Quarter: 2021Q2

REPORT INFORMATION
  Report Type: Report from Study
  Country: US (occurrence: US)
  Receive Date: 20210605
  Receipt Date: 20210617
  Transmission Date: 20210717
  Serious: Yes (Hospitalization)
  Sender: FDA-Public Use
  Company Number: NVSC2021US126487

PATIENT
  Age: 42 Year
  Sex: Male

DRUGS (2)
  1. KESIMPTA [Suspect]
     Active Substance: OFATUMUMAB
     Indication: RELAPSING-REMITTING MULTIPLE SCLEROSIS
     Dosage: 20 MG, QMO
     Route: 058
     Dates: start: 20210603
  2. KESIMPTA [Suspect]
     Active Substance: OFATUMUMAB
     Dosage: 20 MG, QW
     Route: 058

REACTIONS (8)
  - Hypoaesthesia [Unknown]
  - Depressed mood [Unknown]
  - Psychiatric symptom [Unknown]
  - Chills [Recovered/Resolved]
  - Hypokinesia [Recovered/Resolved]
  - Pyrexia [Recovered/Resolved]
  - Limb discomfort [Recovered/Resolved]
  - Spinal stenosis [Unknown]

NARRATIVE: CASE EVENT DATE: 20210603
